FAERS Safety Report 14363156 (Version 1)
Quarter: 2018Q1

REPORT INFORMATION
  Report Type: Spontaneous
  Country: US (occurrence: US)
  Receive Date: 20180108
  Receipt Date: 20180108
  Transmission Date: 20180509
  Serious: No
  Sender: FDA-Public Use
  Company Number: US-ALLERGAN-1682594US

PATIENT
  Sex: Female

DRUGS (1)
  1. BYSTOLIC [Suspect]
     Active Substance: NEBIVOLOL HYDROCHLORIDE
     Indication: HYPERTENSION
     Dosage: 15 MG, UNKNOWN
     Route: 065

REACTIONS (4)
  - Expired product administered [Unknown]
  - Drug dispensing error [Unknown]
  - Drug ineffective [Unknown]
  - Wrong technique in product usage process [Unknown]
